FAERS Safety Report 5481819-5 (Version None)
Quarter: 2007Q4

REPORT INFORMATION
  Report Type: 
  Country: None (occurrence: None)
  Receive Date: 20071010
  Receipt Date: 20071003
  Transmission Date: 20080405
  Serious: Yes (Other)
  Sender: FDA-Public Use
  Company Number: ZW-BOEHRINGER INGELHEIM PHARMACEUTICALS, INC.-2007-BP-20097BP

PATIENT
  Sex: Male
  Weight: 4 kg

DRUGS (2)
  1. VIRAMUNE [Suspect]
     Indication: HIV INFECTION
     Route: 048
     Dates: start: 20070811, end: 20070823
  2. PLACEBO [Suspect]
     Indication: HIV INFECTION
     Route: 048
     Dates: start: 20070727, end: 20070810

REACTIONS (1)
  - PNEUMONIA [None]
